FAERS Safety Report 16172689 (Version 1)
Quarter: 2019Q2

REPORT INFORMATION
  Report Type: Spontaneous
  Country: FR (occurrence: FR)
  Receive Date: 20190409
  Receipt Date: 20190409
  Transmission Date: 20190711
  Serious: Yes (Hospitalization)
  Sender: FDA-Public Use
  Company Number: FR-TEVA-2019-FR-1033801

PATIENT
  Age: 46 Year
  Sex: Male

DRUGS (1)
  1. ALPRAZOLAM. [Suspect]
     Active Substance: ALPRAZOLAM
     Dosage: 2 MILLIGRAM DAILY;
     Route: 048

REACTIONS (2)
  - Depressive symptom [Recovering/Resolving]
  - Drug detoxification [Recovering/Resolving]
